FAERS Safety Report 5675082-X (Version None)
Quarter: 2008Q1

REPORT INFORMATION
  Report Type: 
  Country: None (occurrence: None)
  Receive Date: 20080320
  Receipt Date: 20080317
  Transmission Date: 20080703
  Serious: Yes (Hospitalization)
  Sender: FDA-Public Use
  Company Number: US-AVENTIS-200811682US

PATIENT
  Age: 9 Year
  Sex: Female

DRUGS (2)
  1. LANTUS [Suspect]
     Indication: TYPE 1 DIABETES MELLITUS
     Route: 051
     Dates: start: 20040101
  2. NOVOLOG [Suspect]
     Dosage: DOSE: UNK

REACTIONS (6)
  - BLOOD GLUCOSE INCREASED [None]
  - BLOOD POTASSIUM DECREASED [None]
  - DRUG INEFFECTIVE [None]
  - DYSPNOEA [None]
  - KETOSIS [None]
  - PHARMACEUTICAL PRODUCT COMPLAINT [None]
